FAERS Safety Report 21001424 (Version 1)
Quarter: 2022Q2

REPORT INFORMATION
  Report Type: Spontaneous
  Country: US (occurrence: US)
  Receive Date: 20220624
  Receipt Date: 20220624
  Transmission Date: 20220721
  Serious: Yes (Other)
  Sender: FDA-Public Use
  Company Number: US-BRISTOL-MYERS SQUIBB COMPANY-2022-056321

PATIENT
  Age: 74 Year
  Sex: Female
  Weight: 126 kg

DRUGS (1)
  1. REVLIMID [Suspect]
     Active Substance: LENALIDOMIDE
     Indication: Plasma cell myeloma
     Dosage: DAILY 21 ON 28
     Route: 048

REACTIONS (6)
  - Dizziness [Unknown]
  - Dizziness [Unknown]
  - Diarrhoea [Unknown]
  - Arthralgia [Unknown]
  - Aortic valve calcification [Unknown]
  - Pneumonia [Unknown]
